FAERS Safety Report 24603044 (Version 1)
Quarter: 2024Q4

REPORT INFORMATION
  Report Type: Spontaneous
  Country: US (occurrence: US)
  Receive Date: 20241111
  Receipt Date: 20241111
  Transmission Date: 20250115
  Serious: No
  Sender: TRAVERE THERAPEUTICS
  Company Number: US-TRAVERE-2024TVT01061

PATIENT
  Age: 67 Year
  Sex: Female

DRUGS (9)
  1. FILSPARI [Suspect]
     Active Substance: SPARSENTAN
     Indication: Renal disorder
     Dosage: DAY 1-14 (200MG)
     Route: 048
     Dates: start: 20240914, end: 20240927
  2. FILSPARI [Suspect]
     Active Substance: SPARSENTAN
     Dosage: DAYS 15-30 (2 TABLETS OF 200MG)
     Route: 048
     Dates: start: 20240928, end: 20241013
  3. FILSPARI [Suspect]
     Active Substance: SPARSENTAN
     Route: 048
     Dates: start: 202410
  4. VENLAFAXINE HYDROCHLORIDE [Concomitant]
     Active Substance: VENLAFAXINE HYDROCHLORIDE
  5. WELLBUTRIN XL [Concomitant]
     Active Substance: BUPROPION HYDROCHLORIDE
  6. FENOFIBRATE [Concomitant]
     Active Substance: FENOFIBRATE
  7. ATORVASTATIN [Concomitant]
     Active Substance: ATORVASTATIN
  8. CARVEDILOL [Concomitant]
     Active Substance: CARVEDILOL
  9. FARXIGA [Concomitant]
     Active Substance: DAPAGLIFLOZIN PROPANEDIOL

REACTIONS (10)
  - Dry mouth [Unknown]
  - Nausea [Unknown]
  - Retching [Unknown]
  - Decreased appetite [Unknown]
  - Back pain [Unknown]
  - Vomiting [Unknown]
  - Pruritus [Unknown]
  - Throat irritation [Unknown]
  - Hypersensitivity [Unknown]
  - Product use in unapproved indication [Unknown]

NARRATIVE: CASE EVENT DATE: 20240914
